FAERS Safety Report 5242732-1 (Version None)
Quarter: 2007Q1

REPORT INFORMATION
  Report Type: 
  Country: None (occurrence: None)
  Receive Date: 20070221
  Receipt Date: 20070212
  Transmission Date: 20070707
  Serious: Yes (Other)
  Sender: FDA-Public Use
  Company Number: NL-GLAXOSMITHKLINE-B0459041A

PATIENT
  Age: 60 Year
  Sex: Male
  Weight: 70 kg

DRUGS (9)
  1. LAMOTRIGINE [Suspect]
     Indication: DRUG USE FOR UNKNOWN INDICATION
     Dosage: 25MG TWICE PER DAY
     Route: 048
  2. ZYPREXA [Suspect]
     Indication: BIPOLAR DISORDER
     Dosage: 5MG PER DAY
     Route: 048
     Dates: start: 20070115, end: 20070123
  3. RIVOTRIL [Concomitant]
     Dosage: 1.5MG PER DAY
     Route: 048
  4. DEPAKENE [Concomitant]
     Indication: BIPOLAR DISORDER
  5. VALPROATE SODIUM [Concomitant]
     Dosage: 2MG FOUR TIMES PER DAY
     Route: 048
  6. DALMADORM [Concomitant]
     Dosage: 30MG PER DAY
     Route: 048
     Dates: end: 20070123
  7. MOVICOLON [Concomitant]
  8. MACROGOL [Concomitant]
  9. ELECTROLYTES [Concomitant]

REACTIONS (11)
  - BLOOD CREATINE PHOSPHOKINASE INCREASED [None]
  - CHOKING [None]
  - FEELING ABNORMAL [None]
  - MALAISE [None]
  - MENTAL IMPAIRMENT [None]
  - MONOCYTOSIS [None]
  - PAIN [None]
  - PNEUMONIA [None]
  - PYREXIA [None]
  - RHABDOMYOLYSIS [None]
  - URINARY INCONTINENCE [None]
